FAERS Safety Report 8962619 (Version 1)
Quarter: 2012Q4

REPORT INFORMATION
  Report Type: Report from Study
  Country: CA (occurrence: CA)
  Receive Date: 20121213
  Receipt Date: 20121213
  Transmission Date: 20130627
  Serious: Yes (Other)
  Sender: FDA-Public Use
  Company Number: CA-ROCHE-1167247

PATIENT
  Sex: Female

DRUGS (1)
  1. OMALIZUMAB [Suspect]
     Indication: ASTHMA
     Route: 058
     Dates: start: 20070412

REACTIONS (6)
  - Hypersensitivity [Unknown]
  - Productive cough [Unknown]
  - Wheezing [Unknown]
  - Nasal congestion [Unknown]
  - Rales [Unknown]
  - Influenza [Unknown]
